FAERS Safety Report 12061767 (Version 1)
Quarter: 2016Q1

REPORT INFORMATION
  Report Type: Spontaneous
  Country: US (occurrence: US)
  Receive Date: 20160210
  Receipt Date: 20160210
  Transmission Date: 20160526
  Serious: No
  Sender: FDA-Public Use
  Company Number: US-ALLERGAN-1504311US

PATIENT
  Age: 54 Year
  Sex: Female

DRUGS (3)
  1. VITAMINS [Concomitant]
     Active Substance: VITAMINS
     Dosage: UNK
  2. BOTOX [Suspect]
     Active Substance: ONABOTULINUMTOXINA
     Indication: MIGRAINE
     Dosage: UNK, SINGLE
     Dates: start: 20150226, end: 20150226
  3. PROBIOTICS [Concomitant]
     Active Substance: PROBIOTICS NOS
     Indication: IMPAIRED GASTRIC EMPTYING
     Dosage: UNK

REACTIONS (5)
  - Eyelid oedema [Not Recovered/Not Resolved]
  - Hypersensitivity [Unknown]
  - Facial spasm [Recovering/Resolving]
  - Therapeutic response decreased [Unknown]
  - Lymphadenopathy [Not Recovered/Not Resolved]
